FAERS Safety Report 9563772 (Version 1)
Quarter: 2013Q3

REPORT INFORMATION
  Report Type: Spontaneous
  Country: US (occurrence: None)
  Receive Date: 20130926
  Receipt Date: 20130926
  Transmission Date: 20140515
  Serious: Yes (Disabling)
  Sender: FDA-Public Use
  Company Number: None

PATIENT
  Age: 71 Year
  Sex: Male
  Weight: 100.7 kg

DRUGS (1)
  1. DICLOFENAC [Suspect]
     Indication: ARTHRITIS
     Route: 048
     Dates: start: 20130904, end: 20130904

REACTIONS (4)
  - Vision blurred [None]
  - Headache [None]
  - Oral mucosal blistering [None]
  - Dizziness [None]
